FAERS Safety Report 5742767-6 (Version None)
Quarter: 2008Q2

REPORT INFORMATION
  Report Type: 
  Country: None (occurrence: None)
  Receive Date: 20080519
  Receipt Date: 20080509
  Transmission Date: 20081010
  Serious: Yes (Hospitalization)
  Sender: FDA-Public Use
  Company Number: CG-MERCK-0805USA02194

PATIENT
  Age: 35 Year
  Sex: Male

DRUGS (1)
  1. STROMECTOL [Suspect]
     Indication: ONCHOCERCIASIS
     Route: 048
     Dates: start: 20071128, end: 20071128

REACTIONS (8)
  - ABNORMAL BEHAVIOUR [None]
  - BACK PAIN [None]
  - COMA [None]
  - CONJUNCTIVAL HAEMORRHAGE [None]
  - FATIGUE [None]
  - HEADACHE [None]
  - SPEECH DISORDER [None]
  - URINARY INCONTINENCE [None]
